FAERS Safety Report 18724778 (Version 3)
Quarter: 2021Q4

REPORT INFORMATION
  Report Type: Report from Study
  Country: US (occurrence: US)
  Receive Date: 20210111
  Receipt Date: 20211207
  Transmission Date: 20220303
  Serious: Yes (Hospitalization, Other)
  Sender: FDA-Public Use
  Company Number: US-TAKEDA-2021TUS001156

PATIENT
  Age: 76 Year
  Sex: Female

DRUGS (8)
  1. TEDUGLUTIDE [Suspect]
     Active Substance: TEDUGLUTIDE
     Indication: Product used for unknown indication
     Dosage: 0.4332 UNK, QD
     Route: 058
     Dates: start: 20170607
  2. TEDUGLUTIDE [Suspect]
     Active Substance: TEDUGLUTIDE
     Indication: Product used for unknown indication
     Dosage: 0.4332 UNK, QD
     Route: 058
     Dates: start: 20170607
  3. TEDUGLUTIDE [Suspect]
     Active Substance: TEDUGLUTIDE
     Indication: Product used for unknown indication
     Dosage: 0.4332 UNK, QD
     Route: 058
     Dates: start: 20170607
  4. TEDUGLUTIDE [Suspect]
     Active Substance: TEDUGLUTIDE
     Indication: Product used for unknown indication
     Dosage: 0.4332 UNK, QD
     Route: 058
     Dates: start: 20170607
  5. TEDUGLUTIDE [Suspect]
     Active Substance: TEDUGLUTIDE
     Dosage: 0.3969 UNK, QD
     Route: 058
     Dates: start: 20170607
  6. TEDUGLUTIDE [Suspect]
     Active Substance: TEDUGLUTIDE
     Dosage: 0.3969 UNK, QD
     Route: 058
     Dates: start: 20170607
  7. TEDUGLUTIDE [Suspect]
     Active Substance: TEDUGLUTIDE
     Dosage: 0.3969 UNK, QD
     Route: 058
     Dates: start: 20170607
  8. TEDUGLUTIDE [Suspect]
     Active Substance: TEDUGLUTIDE
     Dosage: 0.3969 UNK, QD
     Route: 058
     Dates: start: 20170607

REACTIONS (7)
  - Pneumonia [Not Recovered/Not Resolved]
  - Sepsis [Not Recovered/Not Resolved]
  - Vascular device infection [Recovering/Resolving]
  - Pyrexia [Recovering/Resolving]
  - Chills [Recovering/Resolving]
  - Product dose omission issue [Not Recovered/Not Resolved]
  - Product availability issue [Unknown]

NARRATIVE: CASE EVENT DATE: 20201223
